FAERS Safety Report 9983023 (Version 1)
Quarter: 2014Q1

REPORT INFORMATION
  Report Type: Report from Study
  Country: US (occurrence: US)
  Receive Date: 20140307
  Receipt Date: 20140307
  Transmission Date: 20141002
  Serious: No
  Sender: FDA-Public Use
  Company Number: US-ABBVIE-13P-163-1176588-00

PATIENT
  Age: 46 Year
  Sex: Male

DRUGS (7)
  1. HUMIRA [Suspect]
     Indication: PSORIATIC ARTHROPATHY
     Dates: start: 20131105
  2. HUMIRA [Suspect]
     Dates: start: 20131114
  3. HUMIRA [Suspect]
     Dates: start: 20131128
  4. PREDNISONE [Concomitant]
     Indication: ARTHRITIS
     Route: 048
  5. CLARINEX-D [Concomitant]
     Indication: RHINITIS ALLERGIC
  6. HCTZ [Concomitant]
     Indication: HYPERTENSION
     Route: 048
  7. NAPROXYN SODIUM [Concomitant]
     Indication: PAIN
     Dosage: 2-3 TIMES PER DAY
     Route: 048

REACTIONS (2)
  - Circumstance or information capable of leading to medication error [Recovered/Resolved]
  - Pain [Recovered/Resolved]
